FAERS Safety Report 11093328 (Version 1)
Quarter: 2015Q2

REPORT INFORMATION
  Report Type: Spontaneous
  Country: US (occurrence: None)
  Receive Date: 20150428
  Receipt Date: 20150428
  Transmission Date: 20150821
  Serious: Yes (Hospitalization)
  Sender: FDA-Public Use
  Company Number: PHEH2014US014538

PATIENT
  Age: 42 Year
  Sex: Female

DRUGS (3)
  1. GILENYA [Suspect]
     Active Substance: FINGOLIMOD HYDROCHLORIDE
     Indication: MULTIPLE SCLEROSIS
     Route: 048
     Dates: start: 20140716, end: 20140716
  2. KLONOPIN [Concomitant]
     Active Substance: CLONAZEPAM
  3. VIT D3 (COLECALCIFEROL)? [Concomitant]

REACTIONS (3)
  - Bradycardia [None]
  - Atrioventricular block first degree [None]
  - Atrioventricular block second degree [None]

NARRATIVE: CASE EVENT DATE: 20140716
